FAERS Safety Report 6531189-6 (Version None)
Quarter: 2010Q1

REPORT INFORMATION
  Report Type: 
  Country: None (occurrence: None)
  Receive Date: 20100108
  Receipt Date: 20091228
  Transmission Date: 20100710
  Serious: Yes (Hospitalization)
  Sender: FDA-Public Use
  Company Number: PHHY2009JP59137

PATIENT

DRUGS (1)
  1. COMTAN [Suspect]
     Indication: PARKINSON'S DISEASE

REACTIONS (1)
  - THROMBOCYTOPENIA [None]
